FAERS Safety Report 21303029 (Version 1)
Quarter: 2022Q3

REPORT INFORMATION
  Report Type: Spontaneous
  Country: US (occurrence: None)
  Receive Date: 20220907
  Receipt Date: 20220907
  Transmission Date: 20221026
  Serious: Yes (unspecified)
  Sender: FDA-Public Use
  Company Number: None

PATIENT
  Age: 57 Year
  Sex: Female
  Weight: 56.25 kg

DRUGS (1)
  1. JEUVEAU [Suspect]
     Active Substance: PRABOTULINUMTOXINA-XVFS
     Route: 030
     Dates: start: 20220614

REACTIONS (4)
  - Pain [None]
  - Injection site swelling [None]
  - Injection site inflammation [None]
  - Biopsy [None]

NARRATIVE: CASE EVENT DATE: 20220616
